FAERS Safety Report 19937225 (Version 1)
Quarter: 2021Q4

REPORT INFORMATION
  Report Type: Spontaneous
  Country: ZA (occurrence: ZA)
  Receive Date: 20211010
  Receipt Date: 20211010
  Transmission Date: 20220303
  Serious: Yes (Hospitalization)
  Sender: FDA-Public Use
  Company Number: ZA-NOVARTISPH-NVSC2021ZA223941

PATIENT
  Sex: Female
  Weight: 55.1 kg

DRUGS (5)
  1. ACLASTA [Suspect]
     Active Substance: ZOLEDRONIC ACID
     Indication: Osteoporosis
     Dosage: UNK (ANNUALLY)
     Route: 042
     Dates: start: 2016
  2. ACLASTA [Suspect]
     Active Substance: ZOLEDRONIC ACID
     Dosage: UNK
     Route: 042
     Dates: start: 2017
  3. ACLASTA [Suspect]
     Active Substance: ZOLEDRONIC ACID
     Dosage: UNK
     Route: 042
     Dates: start: 2018
  4. ACLASTA [Suspect]
     Active Substance: ZOLEDRONIC ACID
     Dosage: UNK
     Route: 065
  5. CALCIFEROL [Concomitant]
     Indication: Osteoporosis
     Dosage: UNK UNK, QMO
     Route: 048

REACTIONS (4)
  - Upper limb fracture [Recovering/Resolving]
  - Fall [Recovering/Resolving]
  - Bone density decreased [Recovering/Resolving]
  - Bone disorder [Not Recovered/Not Resolved]
